FAERS Safety Report 14739692 (Version 3)
Quarter: 2021Q2

REPORT INFORMATION
  Report Type: Spontaneous
  Country: US (occurrence: US)
  Receive Date: 20180410
  Receipt Date: 20210426
  Transmission Date: 20210716
  Serious: Yes (Hospitalization, Other)
  Sender: FDA-Public Use
  Company Number: US-SUN PHARMACEUTICAL INDUSTRIES LTD-2018US-169582

PATIENT
  Sex: Male

DRUGS (4)
  1. GENTAMICIN. [Suspect]
     Active Substance: GENTAMICIN
     Indication: SEPSIS
     Dosage: UNK
     Route: 065
  2. AMPICILLIN [Suspect]
     Active Substance: AMPICILLIN
     Indication: PRODUCT USED FOR UNKNOWN INDICATION
     Dosage: UNK
     Route: 064
  3. AMPICILLIN [Suspect]
     Active Substance: AMPICILLIN
     Indication: SEPSIS
     Dosage: UNK
     Route: 065
  4. CLINDAMYCIN. [Suspect]
     Active Substance: CLINDAMYCIN
     Indication: PRODUCT USED FOR UNKNOWN INDICATION
     Dosage: UNK
     Route: 064

REACTIONS (8)
  - Coagulopathy [Recovered/Resolved]
  - Klebsiella infection [Unknown]
  - Foetal exposure during pregnancy [Unknown]
  - Drug resistance [Unknown]
  - Hypoglycaemia neonatal [Unknown]
  - Pulmonary haemorrhage [Recovered/Resolved]
  - Anaemia neonatal [Unknown]
  - Thrombocytopenia neonatal [Unknown]
